FAERS Safety Report 9584930 (Version 1)
Quarter: 2013Q4

REPORT INFORMATION
  Report Type: Spontaneous
  Country: US (occurrence: US)
  Receive Date: 20131002
  Receipt Date: 20131002
  Transmission Date: 20140711
  Serious: No
  Sender: FDA-Public Use
  Company Number: US-AMGEN-USASP2013056252

PATIENT
  Age: 62 Year
  Sex: Female
  Weight: 83.9 kg

DRUGS (9)
  1. ENBREL [Suspect]
     Indication: PRODUCT USED FOR UNKNOWN INDICATION
     Dosage: 50 MG, QWK
     Route: 058
  2. HYZAAR [Concomitant]
     Dosage: UNK,100-12.5
  3. CENTRUM                            /02217401/ [Concomitant]
     Dosage: UNK
  4. ZINC [Concomitant]
     Dosage: 30 MG, UNK
  5. CRANBERRY                          /01512301/ [Concomitant]
     Dosage: UNK
  6. PRAVACHOL [Concomitant]
     Dosage: 20 MG, UNK
  7. BENADRYL                           /00000402/ [Concomitant]
     Dosage: 25 MG, UNK
  8. GLUCOSAMINE + CHONDROITIN          /01430901/ [Concomitant]
     Dosage: UNK
  9. ADVIL                              /00109201/ [Concomitant]
     Dosage: 200 MG, UNK

REACTIONS (1)
  - Injection site rash [Unknown]
